FAERS Safety Report 11638845 (Version 1)
Quarter: 2015Q4

REPORT INFORMATION
  Report Type: Spontaneous
  Country: US (occurrence: US)
  Receive Date: 20151017
  Receipt Date: 20151017
  Transmission Date: 20160304
  Serious: No
  Sender: FDA-Public Use
  Company Number: US-NATCO PHARMA LIMITED-1043067

PATIENT
  Sex: Female

DRUGS (1)
  1. ONDANSETRON HYDROCHLORIDE TABLETS, 4 MG AND 8 MG [Suspect]
     Active Substance: ONDANSETRON HYDROCHLORIDE
     Indication: KIDNEY INFECTION
     Route: 048
     Dates: start: 20150930

REACTIONS (1)
  - Constipation [Recovered/Resolved]

NARRATIVE: CASE EVENT DATE: 20151003
